FAERS Safety Report 13495538 (Version 1)
Quarter: 2017Q2

REPORT INFORMATION
  Report Type: Report from Study
  Country: IN (occurrence: IN)
  Receive Date: 20170428
  Receipt Date: 20170428
  Transmission Date: 20170830
  Serious: Yes (Death, Hospitalization)
  Sender: FDA-Public Use
  Company Number: IN-CIPLA (EU) LIMITED-E2B_00002296

PATIENT

DRUGS (21)
  1. ONDANSETRON [Concomitant]
     Active Substance: ONDANSETRON
     Indication: PROPHYLAXIS OF NAUSEA AND VOMITING
     Dosage: 8 MG, QD
     Route: 042
     Dates: start: 20120201, end: 20120201
  2. ONDANSETRON [Concomitant]
     Active Substance: ONDANSETRON
     Dosage: UNK
     Route: 042
     Dates: start: 20120215, end: 20120215
  3. METOPROLOL TARTRATE. [Concomitant]
     Active Substance: METOPROLOL TARTRATE
     Indication: MYOCARDIAL INFARCTION
     Dosage: UNK
     Route: 042
     Dates: start: 20120215, end: 20120215
  4. PIPERACILLIN/TAZOBACTUM [Concomitant]
     Active Substance: PIPERACILLIN SODIUM\TAZOBACTAM SODIUM
     Indication: NEUTROPENIA
     Dosage: UNK
     Route: 042
     Dates: start: 20120215, end: 20120215
  5. ONCOGEM [Suspect]
     Active Substance: GEMCITABINE HYDROCHLORIDE
     Indication: NON-SMALL CELL LUNG CANCER
     Dosage: 1809 MG, UNK
     Route: 042
     Dates: start: 20120201
  6. DEXAMETHASONE. [Concomitant]
     Active Substance: DEXAMETHASONE
     Dosage: 8 MG, QD
     Route: 042
     Dates: start: 20120208, end: 20120208
  7. FLUCONAZOLE. [Concomitant]
     Active Substance: FLUCONAZOLE
     Indication: NEUTROPENIA
     Dosage: UNK
     Route: 042
     Dates: start: 20120215, end: 20120215
  8. NORADRENALINE CONCENTRATE [Concomitant]
     Dosage: UNK
     Route: 042
  9. RANITIDINE. [Concomitant]
     Active Substance: RANITIDINE
     Indication: HYPERCHLORHYDRIA
     Dosage: 50 MG, QD
     Route: 042
     Dates: start: 20120208, end: 20120208
  10. METRONIDAZOLE. [Concomitant]
     Active Substance: METRONIDAZOLE
     Indication: NEUTROPENIA
     Dosage: UNK
     Route: 042
     Dates: start: 20120215, end: 20120215
  11. CISPLATIN. [Suspect]
     Active Substance: CISPLATIN
     Indication: NON-SMALL CELL LUNG CANCER
     Dosage: 145 MG, UNK
     Route: 042
     Dates: start: 20120201
  12. FRUSEMIDE [Concomitant]
     Active Substance: FUROSEMIDE
     Dosage: UNK
     Route: 042
     Dates: start: 20120215, end: 20120215
  13. FURASEMIDE [Concomitant]
     Indication: POLYURIA
     Dosage: 20 MG, QD
     Route: 042
     Dates: start: 20120201, end: 20120201
  14. ONDANSETRON [Concomitant]
     Active Substance: ONDANSETRON
     Dosage: 50MG
     Route: 042
     Dates: start: 20120208, end: 20120208
  15. RANITIDINE. [Concomitant]
     Active Substance: RANITIDINE
     Indication: PROPHYLAXIS AGAINST GASTROINTESTINAL ULCER
     Dosage: 50 MG, QD
     Route: 042
     Dates: start: 20120201, end: 20120201
  16. MANNITOL. [Concomitant]
     Active Substance: MANNITOL
     Indication: POLYURIA
     Dosage: 70 G, QD
     Route: 042
     Dates: start: 20120201, end: 20120201
  17. FILGRASTIM [Concomitant]
     Active Substance: FILGRASTIM
     Indication: NEUTROPENIA
     Dosage: UNK
     Route: 042
     Dates: start: 20120215, end: 20120215
  18. ONDANSETRON [Concomitant]
     Active Substance: ONDANSETRON
     Indication: VOMITING
     Dosage: 8 MG, TID
     Route: 042
     Dates: start: 20120208, end: 20120208
  19. PROPOFOL. [Concomitant]
     Active Substance: PROPOFOL
     Dosage: UNK
     Route: 042
     Dates: start: 20120215, end: 20120215
  20. DEXAMETHASONE. [Concomitant]
     Active Substance: DEXAMETHASONE
     Indication: PROPHYLAXIS
     Dosage: 8 MG, QD
     Route: 042
     Dates: start: 20120201, end: 20120201
  21. DOPAMINE [Concomitant]
     Active Substance: DOPAMINE\DOPAMINE HYDROCHLORIDE
     Dosage: UNK
     Route: 042

REACTIONS (5)
  - Dyspnoea [Fatal]
  - Vomiting [Recovered/Resolved]
  - Cardio-respiratory arrest [Fatal]
  - Neutropenic sepsis [Fatal]
  - Hyperchlorhydria [Recovered/Resolved]

NARRATIVE: CASE EVENT DATE: 20120202
